FAERS Safety Report 8686597 (Version 2)
Quarter: 2013Q4

REPORT INFORMATION
  Report Type: Spontaneous
  Country: US (occurrence: US)
  Receive Date: 20120726
  Receipt Date: 20131031
  Transmission Date: 20140711
  Serious: Yes (Hospitalization)
  Sender: FDA-Public Use
  Company Number: US-009507513-1207USA009566

PATIENT
  Sex: Female

DRUGS (8)
  1. JANUVIA [Suspect]
     Dosage: 100 MG, QD
     Route: 048
  2. RASILEZ HCT [Suspect]
     Route: 048
  3. INEGY [Suspect]
     Dosage: 10/20 MG
     Route: 048
  4. TRINORDIOL [Suspect]
     Route: 048
  5. MEDIATENSYL [Concomitant]
     Dosage: 30 MG, UNK
     Route: 048
  6. METFORMIN [Concomitant]
     Dosage: 500 MG, UNK
  7. LOXEN [Concomitant]
     Route: 048
  8. BROMAZEPAM [Concomitant]

REACTIONS (4)
  - Hypertriglyceridaemia [Unknown]
  - Pancreatitis acute [Unknown]
  - Hepatic necrosis [Unknown]
  - Hepatic lesion [Unknown]
